FAERS Safety Report 5575768-1 (Version None)
Quarter: 2007Q4

REPORT INFORMATION
  Report Type: 
  Country: None (occurrence: None)
  Receive Date: 20071221
  Receipt Date: 20071211
  Transmission Date: 20080405
  Serious: Yes (Hospitalization)
  Sender: FDA-Public Use
  Company Number: 8028640

PATIENT
  Age: 75 Year
  Sex: Female

DRUGS (1)
  1. KEPPRA [Suspect]
     Indication: EPILEPSY
     Dosage: 4 G/D, 2 G/D

REACTIONS (4)
  - ABNORMAL BEHAVIOUR [None]
  - DRUG LEVEL INCREASED [None]
  - ILL-DEFINED DISORDER [None]
  - INCOHERENT [None]
